FAERS Safety Report 6328505-7 (Version None)
Quarter: 2009Q3

REPORT INFORMATION
  Report Type: 
  Country: None (occurrence: None)
  Receive Date: 20090826
  Receipt Date: 20090818
  Transmission Date: 20100115
  Serious: Yes (Hospitalization)
  Sender: FDA-Public Use
  Company Number: US-BIOGENIDEC-2009BI026605

PATIENT
  Sex: Female

DRUGS (1)
  1. AVONEX [Suspect]
     Indication: MULTIPLE SCLEROSIS
     Route: 030
     Dates: start: 20090311

REACTIONS (5)
  - ASTHMA [None]
  - DEPRESSION [None]
  - FATIGUE [None]
  - ORAL PUSTULE [None]
  - SKIN EXFOLIATION [None]
